FAERS Safety Report 23298225 (Version 1)
Quarter: 2023Q4

REPORT INFORMATION
  Report Type: Spontaneous
  Country: US (occurrence: None)
  Receive Date: 20231214
  Receipt Date: 20231214
  Transmission Date: 20240110
  Serious: Yes (Hospitalization)
  Sender: FDA-Public Use
  Company Number: None

PATIENT
  Age: 63 Year
  Sex: Female
  Weight: 113.85 kg

DRUGS (6)
  1. EXPAREL [Suspect]
     Active Substance: BUPIVACAINE
     Indication: Pain prophylaxis
     Dates: start: 20231207, end: 20231207
  2. SERTRALINE [Concomitant]
     Active Substance: SERTRALINE HYDROCHLORIDE
  3. ompherzol [Concomitant]
  4. cholesterol med [Concomitant]
  5. ELIQUIS [Concomitant]
     Active Substance: APIXABAN
  6. IRON [Concomitant]
     Active Substance: IRON

REACTIONS (3)
  - Hypoaesthesia [None]
  - Paraesthesia [None]
  - Nerve injury [None]

NARRATIVE: CASE EVENT DATE: 20231207
